FAERS Safety Report 9456353 (Version 1)
Quarter: 2013Q3

REPORT INFORMATION
  Report Type: Report from Study
  Country: JP (occurrence: JP)
  Receive Date: 20130813
  Receipt Date: 20130813
  Transmission Date: 20140515
  Serious: Yes (Other)
  Sender: FDA-Public Use
  Company Number: JP-VIIV HEALTHCARE LIMITED-B0914722A

PATIENT
  Sex: Male

DRUGS (13)
  1. EPZICOM [Suspect]
     Indication: HIV INFECTION
     Dosage: 1TAB PER DAY
     Route: 048
     Dates: start: 20110309
  2. MARAVIROC [Suspect]
     Indication: HIV INFECTION
     Dosage: 300MG PER DAY
     Route: 048
     Dates: start: 20121025
  3. PREZISTA [Suspect]
     Indication: HIV INFECTION
     Dosage: 800MG PER DAY
     Route: 048
     Dates: start: 20110824
  4. FLUCONAZOLE [Suspect]
     Indication: DISSEMINATED CRYPTOCOCCOSIS
     Dosage: 400MG PER DAY
     Dates: start: 20120229
  5. NORVIR [Suspect]
     Indication: HIV INFECTION
     Dosage: 100MG PER DAY
     Route: 048
     Dates: start: 20110824
  6. ATOVAQUONE [Suspect]
     Indication: ANTIFUNGAL PROPHYLAXIS
     Dosage: 1500MG PER DAY
     Route: 048
     Dates: start: 20120523
  7. ANCOTIL [Suspect]
     Indication: DISSEMINATED CRYPTOCOCCOSIS
     Route: 048
     Dates: start: 20110222
  8. AMBISOME [Suspect]
     Indication: DISSEMINATED CRYPTOCOCCOSIS
     Dosage: 300MG PER DAY
     Route: 042
     Dates: start: 20110304
  9. ZITHROMAC [Concomitant]
     Dates: start: 20110211, end: 20120424
  10. AMLODIPINE BESILATE [Concomitant]
     Dates: start: 20120314
  11. MICARDIS [Concomitant]
     Dates: start: 20120411
  12. TAKEPRON [Concomitant]
     Dates: start: 20120607
  13. ATOVAQUONE [Concomitant]
     Dates: start: 2011, end: 20120522

REACTIONS (3)
  - Hepatobiliary disease [Not Recovered/Not Resolved]
  - Renal impairment [Not Recovered/Not Resolved]
  - Hyperlipidaemia [Not Recovered/Not Resolved]
